FAERS Safety Report 10258467 (Version 1)
Quarter: 2014Q2

REPORT INFORMATION
  Report Type: Spontaneous
  Country: US (occurrence: None)
  Receive Date: 20140624
  Receipt Date: 20140624
  Transmission Date: 20141212
  Serious: No
  Sender: FDA-Public Use
  Company Number: None

PATIENT
  Age: 51 Year
  Sex: Female

DRUGS (2)
  1. OLYSIO 150 MG [Suspect]
     Route: 048
     Dates: start: 20140509
  2. SOVALDI 400 MG [Suspect]
     Route: 048

REACTIONS (2)
  - Headache [None]
  - Fatigue [None]
